FAERS Safety Report 17120670 (Version 5)
Quarter: 2021Q3

REPORT INFORMATION
  Report Type: Report from Study
  Country: US (occurrence: US)
  Receive Date: 20191206
  Receipt Date: 20210802
  Transmission Date: 20211014
  Serious: Yes (Other)
  Sender: FDA-Public Use
  Company Number: US-ROCHE-2487067

PATIENT
  Age: 67 Year
  Sex: Female
  Weight: 82.5 kg

DRUGS (3)
  1. IBRUTINIB [Suspect]
     Active Substance: IBRUTINIB
     Indication: CHRONIC LYMPHOCYTIC LEUKAEMIA
     Dosage: ON 30/OCT/2019, PATIENT RECEIVED LAST DOSE PRIOR TO EVENT ONSET.?TOTAL DOSE ADMINISTERED: 11760 MG?4
     Route: 048
  2. OBINUTUZUMAB. [Suspect]
     Active Substance: OBINUTUZUMAB
     Indication: CHRONIC LYMPHOCYTIC LEUKAEMIA
     Dosage: ON 10/OCT/2019, PATIENT RECEIVED LAST DOSE OF OBINUTIZUMAB PRIOR TO EVENT ONSET.?TOTAL DOSE ADMINIST
     Route: 042
  3. VENETOCLAX. [Suspect]
     Active Substance: VENETOCLAX
     Indication: CHRONIC LYMPHOCYTIC LEUKAEMIA
     Dosage: ON 30/OCT/2019, THE PATIENT RECEIVED LAST DOSE OF VENETOCLAX PRIOR TO EVENT ONSET.?TOTAL DOSE ADMINI
     Route: 048
     Dates: start: 20191010

REACTIONS (2)
  - Neutrophil count decreased [Recovered/Resolved]
  - Hypertension [Recovering/Resolving]

NARRATIVE: CASE EVENT DATE: 20191031
